FAERS Safety Report 5521947-9 (Version None)
Quarter: 2007Q4

REPORT INFORMATION
  Report Type: 
  Country: None (occurrence: None)
  Receive Date: 20071120
  Receipt Date: 20070412
  Transmission Date: 20080405
  Serious: No
  Sender: FDA-Public Use
  Company Number: US-BRISTOL-MYERS SQUIBB COMPANY-13746359

PATIENT
  Age: 89 Year

DRUGS (2)
  1. AVALIDE [Suspect]
     Indication: HYPERTENSION
     Dosage: 150/12.5 MG BID
  2. DYNACIRC [Concomitant]

REACTIONS (1)
  - BLOOD PRESSURE INCREASED [None]
